FAERS Safety Report 6263757-3 (Version None)
Quarter: 2009Q3

REPORT INFORMATION
  Report Type: 
  Country: None (occurrence: None)
  Receive Date: 20090707
  Receipt Date: 20090707
  Transmission Date: 20100115
  Serious: Yes (Other)
  Sender: FDA-Public Use
  Company Number: None

PATIENT
  Sex: Male

DRUGS (1)
  1. VECURONIUM BROMIDE [Suspect]
     Indication: PARALYSIS
     Dates: start: 20090621, end: 20090629

REACTIONS (2)
  - COUGH [None]
  - DRUG INEFFECTIVE [None]
